FAERS Safety Report 8052410-1 (Version None)
Quarter: 2012Q1

REPORT INFORMATION
  Report Type: 
  Country: None (occurrence: None)
  Receive Date: 20120118
  Receipt Date: 20120111
  Transmission Date: 20120608
  Serious: Yes (Other)
  Sender: FDA-Public Use
  Company Number: FR-PFIZER INC-2012009292

PATIENT
  Age: 50 Year
  Sex: Male
  Weight: 102 kg

DRUGS (7)
  1. LEVOTHYROXINE SODIUM [Concomitant]
     Indication: PRIMARY HYPOTHYROIDISM
  2. HYDROCORTISONE [Concomitant]
     Indication: BLOOD CORTICOTROPHIN ABNORMAL
     Dosage: UNK
     Route: 048
     Dates: start: 20100107
  3. SOMATROPIN [Suspect]
     Indication: HYPOPITUITARISM
     Dosage: UNK
     Dates: start: 20060112, end: 20090720
  4. ANDROTARDYL [Concomitant]
     Indication: BLOOD FOLLICLE STIMULATING HORMONE ABNORMAL
  5. ANDROTARDYL [Concomitant]
     Indication: HYPOGONADISM MALE
  6. LEVOTHYROXINE SODIUM [Concomitant]
     Indication: BLOOD THYROID STIMULATING HORMONE DECREASED
     Dosage: UNK
     Route: 048
     Dates: start: 20050922
  7. ANDROTARDYL [Concomitant]
     Indication: BLOOD LUTEINISING HORMONE ABNORMAL
     Dosage: UNK
     Dates: start: 20050922

REACTIONS (1)
  - PITUITARY TUMOUR BENIGN [None]
